FAERS Safety Report 10053815 (Version 3)
Quarter: 2014Q2

REPORT INFORMATION
  Report Type: Spontaneous
  Country: US (occurrence: US)
  Receive Date: 20140402
  Receipt Date: 20140617
  Transmission Date: 20141212
  Serious: Yes (Hospitalization)
  Sender: FDA-Public Use
  Company Number: PHEH2014US006354

PATIENT
  Sex: Male

DRUGS (4)
  1. CLOZARIL [Suspect]
     Dosage: UNK
  2. CLOZARIL [Suspect]
     Dosage: (DOSE INCREASED)
  3. CLOZARIL [Suspect]
     Dosage: 250 MG (LOWER DOSE)
  4. CLOZARIL [Suspect]
     Dosage: 400 MG

REACTIONS (3)
  - Psychiatric decompensation [Unknown]
  - White blood cell count decreased [Unknown]
  - Neutrophil count decreased [Unknown]
